FAERS Safety Report 12126630 (Version 3)
Quarter: 2016Q2

REPORT INFORMATION
  Report Type: Spontaneous
  Country: US (occurrence: US)
  Receive Date: 20160229
  Receipt Date: 20160415
  Transmission Date: 20160815
  Serious: Yes (Other)
  Sender: FDA-Public Use
  Company Number: US-AMGEN-USASP2016023735

PATIENT
  Age: 76 Year
  Sex: Female
  Weight: 56.7 kg

DRUGS (7)
  1. METHOTREXATE [Concomitant]
     Active Substance: METHOTREXATE
     Dosage: UNK
  2. HUMIRA [Concomitant]
     Active Substance: ADALIMUMAB
     Dosage: UNK
  3. SIMPONI [Concomitant]
     Active Substance: GOLIMUMAB
     Dosage: UNK
  4. REMICADE [Concomitant]
     Active Substance: INFLIXIMAB
     Dosage: UNK
  5. ORENCIA [Concomitant]
     Active Substance: ABATACEPT
  6. RITUXAN [Concomitant]
     Active Substance: RITUXIMAB
  7. ENBREL [Suspect]
     Active Substance: ETANERCEPT
     Indication: RHEUMATOID ARTHRITIS
     Dosage: UNK
     Route: 065

REACTIONS (15)
  - Drug ineffective [Unknown]
  - Erythema [Unknown]
  - Ear infection [Unknown]
  - Pelvic pain [Unknown]
  - Palpitations [Unknown]
  - Pain in extremity [Unknown]
  - Urinary tract infection [Unknown]
  - Urine odour abnormal [Unknown]
  - Dyspnoea [Unknown]
  - Tympanic membrane perforation [Unknown]
  - Pain [Unknown]
  - Hand deformity [Unknown]
  - Foot deformity [Unknown]
  - Deafness [Unknown]
  - Back pain [Unknown]
